FAERS Safety Report 4479217-6 (Version None)
Quarter: 2004Q4

REPORT INFORMATION
  Report Type: 
  Country: None (occurrence: None)
  Receive Date: 20041020
  Receipt Date: 20041011
  Transmission Date: 20050328
  Serious: Yes (Other)
  Sender: FDA-Public Use
  Company Number: US-JNJFOC-20040809891

PATIENT
  Sex: Female
  Weight: 68.04 kg

DRUGS (22)
  1. REMICADE [Suspect]
     Route: 042
  2. REMICADE [Suspect]
     Route: 042
  3. REMICADE [Suspect]
     Route: 042
  4. REMICADE [Suspect]
     Route: 042
  5. REMICADE [Suspect]
     Route: 042
  6. REMICADE [Suspect]
     Indication: RHEUMATOID ARTHRITIS
     Route: 042
  7. VASERETIC [Concomitant]
     Dosage: EVERY DAY.
  8. VASERETIC [Concomitant]
  9. VASERETIC [Concomitant]
     Dosage: EVERY DAY.
  10. METHOTREXATE [Concomitant]
     Route: 049
  11. METHOTREXATE [Concomitant]
     Route: 049
  12. METHOTREXATE [Concomitant]
     Route: 049
  13. METHOTREXATE [Concomitant]
     Route: 049
  14. METHOTREXATE [Concomitant]
     Route: 049
  15. FOLIC ACID [Concomitant]
  16. FOLIC ACID [Concomitant]
  17. LEUCOVORIN CALCIUM [Concomitant]
  18. LEUCOVORIN CALCIUM [Concomitant]
  19. ZOCOR [Concomitant]
  20. ZOCOR [Concomitant]
  21. ZOCOR [Concomitant]
  22. ZOCOR [Concomitant]

REACTIONS (7)
  - ABDOMINAL MASS [None]
  - DIFFUSE LARGE B-CELL LYMPHOMA [None]
  - HAEMATOCRIT DECREASED [None]
  - INGUINAL MASS [None]
  - MEAN CELL HAEMOGLOBIN DECREASED [None]
  - PLATELET COUNT DECREASED [None]
  - RED BLOOD CELL COUNT DECREASED [None]
